FAERS Safety Report 16212470 (Version 1)
Quarter: 2019Q2

REPORT INFORMATION
  Report Type: Spontaneous
  Country: FR (occurrence: US)
  Receive Date: 20190418
  Receipt Date: 20190418
  Transmission Date: 20190711
  Serious: No
  Sender: FDA-Public Use
  Company Number: FR-PFIZER INC-2019162100

PATIENT

DRUGS (2)
  1. INLYTA [Suspect]
     Active Substance: AXITINIB
     Indication: RENAL CELL CARCINOMA
     Dosage: UNK
  2. BAVENCIO [Suspect]
     Active Substance: AVELUMAB
     Indication: RENAL CELL CARCINOMA
     Dosage: UNK

REACTIONS (4)
  - Diarrhoea [Unknown]
  - Toxicity to various agents [Unknown]
  - Rash [Unknown]
  - Colitis [Unknown]
